FAERS Safety Report 7018352-5 (Version None)
Quarter: 2010Q3

REPORT INFORMATION
  Report Type: 
  Country: None (occurrence: None)
  Receive Date: 20100924
  Receipt Date: 20100908
  Transmission Date: 20110219
  Serious: Yes (Other)
  Sender: FDA-Public Use
  Company Number: ACO_02133_2010

PATIENT
  Sex: Female
  Weight: 98.8842 kg

DRUGS (12)
  1. AMPYRA [Suspect]
     Indication: MULTIPLE SCLEROSIS
     Dosage: (10 MG BID ORAL)
     Route: 048
     Dates: start: 20100902, end: 20100903
  2. ZANAFLEX [Suspect]
     Indication: PRODUCT USED FOR UNKNOWN INDICATION
     Dosage: (DF)
  3. LISINOPRIL [Concomitant]
  4. HYDROCHLOROTHIAZIDE [Concomitant]
  5. AMANTADINE [Concomitant]
  6. TRAMADOL [Concomitant]
  7. LEVOTHYROXINE [Concomitant]
  8. OXYBUTYNIN [Concomitant]
  9. AVONEX [Concomitant]
  10. BUMEX [Concomitant]
  11. ASCORBIC ACID [Concomitant]
  12. ANTIBIOTICS [Concomitant]

REACTIONS (3)
  - CONVULSION [None]
  - MOUTH HAEMORRHAGE [None]
  - TONGUE BITING [None]
